FAERS Safety Report 5446394-X (Version None)
Quarter: 2007Q3

REPORT INFORMATION
  Report Type: 
  Country: None (occurrence: None)
  Receive Date: 20070907
  Receipt Date: 20070906
  Transmission Date: 20080115
  Serious: Yes (Hospitalization)
  Sender: FDA-Public Use
  Company Number: A0678298A

PATIENT
  Age: 48 Year
  Sex: Female

DRUGS (1)
  1. ALLI [Suspect]
     Indication: DRUG USE FOR UNKNOWN INDICATION
     Route: 048

REACTIONS (7)
  - ADVERSE EVENT [None]
  - ARRHYTHMIA [None]
  - ASTHENIA [None]
  - CARDIAC ARREST [None]
  - FEAR [None]
  - FEAR OF DEATH [None]
  - PHLEBITIS [None]
